FAERS Safety Report 9674595 (Version 1)
Quarter: 2013Q4

REPORT INFORMATION
  Report Type: Spontaneous
  Country: DE (occurrence: DE)
  Receive Date: 20131107
  Receipt Date: 20131107
  Transmission Date: 20140711
  Serious: Yes (Hospitalization)
  Sender: FDA-Public Use
  Company Number: DE-AMGEN-DEUSP2013078551

PATIENT
  Age: 52 Year
  Sex: Female

DRUGS (4)
  1. ENBREL [Suspect]
     Indication: RHEUMATOID ARTHRITIS
     Dosage: 25 MG, WEEKLY
     Route: 065
     Dates: start: 20130131, end: 20130923
  2. METHOTREXATE [Concomitant]
     Dosage: UNK
  3. CORTISONE [Concomitant]
     Dosage: 5 MG, UNK
  4. QUENSYL [Concomitant]
     Dosage: UNK

REACTIONS (1)
  - Hand deformity [Recovered/Resolved]
